FAERS Safety Report 12770366 (Version 1)
Quarter: 2016Q3

REPORT INFORMATION
  Report Type: Spontaneous
  Country: GB (occurrence: GB)
  Receive Date: 20160922
  Receipt Date: 20160922
  Transmission Date: 20161109
  Serious: Yes (Other)
  Sender: FDA-Public Use
  Company Number: GB-TEVA-693043ACC

PATIENT
  Sex: Male

DRUGS (2)
  1. DILZEM XL [Suspect]
     Active Substance: DILTIAZEM
     Dosage: 120 MILLIGRAM DAILY; PL 16260-0020
     Route: 065
     Dates: start: 20160830
  2. DILZEM XL [Suspect]
     Active Substance: DILTIAZEM
     Dosage: SEVERAL YEARS PL 16260-0019
     Route: 065

REACTIONS (3)
  - Cerebrovascular accident [Unknown]
  - Chest discomfort [Unknown]
  - General physical health deterioration [Unknown]
